FAERS Safety Report 5830360-6 (Version None)
Quarter: 2008Q3

REPORT INFORMATION
  Report Type: 
  Country: None (occurrence: None)
  Receive Date: 20080801
  Receipt Date: 20080724
  Transmission Date: 20090109
  Serious: Yes (Other)
  Sender: FDA-Public Use
  Company Number: GB-ALLERGAN-0809092US

PATIENT
  Sex: Female

DRUGS (1)
  1. DYSPORT [Suspect]
     Indication: HEAD TITUBATION
     Dosage: 950 UNITS, SINGLE
     Route: 030
     Dates: start: 20080605, end: 20080605

REACTIONS (13)
  - BACK PAIN [None]
  - DIPLOPIA [None]
  - DIZZINESS [None]
  - DRY MOUTH [None]
  - DYSPHONIA [None]
  - HEADACHE [None]
  - MALAISE [None]
  - MIGRAINE [None]
  - MUSCLE SPASTICITY [None]
  - MUSCULAR WEAKNESS [None]
  - MUSCULOSKELETAL PAIN [None]
  - NAUSEA [None]
  - RHINORRHOEA [None]
